FAERS Safety Report 9061546 (Version 1)
Quarter: 2013Q1

REPORT INFORMATION
  Report Type: Spontaneous
  Country: CA (occurrence: CA)
  Receive Date: 20130204
  Receipt Date: 20130204
  Transmission Date: 20140127
  Serious: Yes (Other)
  Sender: FDA-Public Use
  Company Number: CA-MILLENNIUM PHARMACEUTICALS, INC.-2013-00677

PATIENT
  Sex: 0

DRUGS (13)
  1. VELCADE [Suspect]
     Indication: PLASMA CELL MYELOMA
     Dosage: UNK
     Route: 065
     Dates: start: 20120821
  2. CYCLOPHOSPHAMIDE [Concomitant]
     Dosage: UNK
  3. DEXAMETHASONE [Concomitant]
     Dosage: 40 MG, UNK
  4. DEXAMETHASONE [Concomitant]
     Dosage: 20 MG, UNK
  5. ASPIRIN [Concomitant]
     Dosage: 81 MG, UNK
  6. CRESTOR                            /01588601/ [Concomitant]
     Dosage: 10 MG, UNK
  7. L-THYROXINE                        /00068001/ [Concomitant]
     Dosage: 0.5 MG, UNK
  8. MIDODRINE [Concomitant]
     Dosage: 10 MG, UNK
  9. LORAZEPAM [Concomitant]
     Dosage: UNK
  10. ACICLOVIR [Concomitant]
     Dosage: UNK
  11. SEPTRA [Concomitant]
     Dosage: UNK
  12. ZOFRAN                             /00955301/ [Concomitant]
     Dosage: UNK
  13. IMODIUM                            /00384302/ [Concomitant]
     Dosage: UNK

REACTIONS (7)
  - Cardiac amyloidosis [Unknown]
  - Renal amyloidosis [Unknown]
  - Plasma cell myeloma [Unknown]
  - Blood pressure increased [Unknown]
  - Vomiting [Not Recovered/Not Resolved]
  - Nausea [Recovering/Resolving]
  - Muscular weakness [Unknown]
